FAERS Safety Report 12183904 (Version 1)
Quarter: 2016Q1

REPORT INFORMATION
  Report Type: Spontaneous
  Country: DE (occurrence: DE)
  Receive Date: 20160316
  Receipt Date: 20160316
  Transmission Date: 20160526
  Serious: Yes (Other)
  Sender: FDA-Public Use
  Company Number: DE-SUN PHARMACEUTICAL INDUSTRIES LTD-2016RR-113227

PATIENT
  Age: 1 Day
  Sex: Male
  Weight: 3.45 kg

DRUGS (5)
  1. CITALOPRAM [Suspect]
     Active Substance: CITALOPRAM HYDROBROMIDE
     Indication: DEPRESSION
     Dosage: 10 MG, QD, 0.-38.3. GESTATIONAL WEEK
     Route: 064
     Dates: start: 20150215, end: 20151111
  2. MIRTAZAPINE. [Suspect]
     Active Substance: MIRTAZAPINE
     Indication: SLEEP DISORDER
     Dosage: 7.5 MG, QD, 0.-38.3. GESTATIONAL WEEK
     Route: 064
     Dates: start: 20150215, end: 20151111
  3. FEMIBION [Concomitant]
     Active Substance: VITAMINS
     Indication: VITAMIN SUPPLEMENTATION
     Dosage: PROBABLY UNTIL DELIVERY; HOWEVER, DURATION OF INTAKE WAS NOT TOLD; 13.-GESTATIONAL WEEK
     Route: 064
  4. TIANEURAX [Suspect]
     Active Substance: TIANEPTINE SODIUM
     Indication: DEPRESSION
     Dosage: 12.5 MG, QD, 0.-38.3. GESTATIONAL WEEK
     Route: 064
     Dates: start: 20150215, end: 20151111
  5. METOHEXAL [Concomitant]
     Active Substance: METOPROLOL SUCCINATE
     Indication: ARRHYTHMIA
     Dosage: 71.25 MG/DAY (23.75 MG-0-47.5MG/DAY), 0.-38.3. GESTATIONAL WEEK
     Route: 064
     Dates: start: 20150215, end: 20151111

REACTIONS (1)
  - Respiratory disorder neonatal [Recovered/Resolved]

NARRATIVE: CASE EVENT DATE: 20151111
